FAERS Safety Report 16866037 (Version 1)
Quarter: 2019Q3

REPORT INFORMATION
  Report Type: Spontaneous
  Country: US (occurrence: US)
  Receive Date: 20190930
  Receipt Date: 20190930
  Transmission Date: 20191005
  Serious: No
  Sender: FDA-Public Use
  Company Number: US-ALLERGAN-1921343US

PATIENT
  Age: 14 Year
  Sex: Female

DRUGS (3)
  1. VENLAFAXINE [Concomitant]
     Active Substance: VENLAFAXINE HYDROCHLORIDE
     Dosage: 75 MG, QD
  2. VRAYLAR [Suspect]
     Active Substance: CARIPRAZINE
     Indication: POST-TRAUMATIC STRESS DISORDER
  3. VRAYLAR [Suspect]
     Active Substance: CARIPRAZINE
     Indication: AFFECTIVE DISORDER
     Dosage: 3 MG, QD
     Route: 065
     Dates: start: 201903, end: 20190518

REACTIONS (1)
  - Off label use [Unknown]

NARRATIVE: CASE EVENT DATE: 201903
